FAERS Safety Report 10615386 (Version 1)
Quarter: 2014Q4

REPORT INFORMATION
  Report Type: Spontaneous
  Country: US (occurrence: None)
  Receive Date: 20141125
  Receipt Date: 20141125
  Transmission Date: 20150529
  Serious: Yes (Life-Threatening, Hospitalization)
  Sender: FDA-Public Use
  Company Number: None

PATIENT
  Age: 48 Year
  Sex: Male
  Weight: 72.58 kg

DRUGS (1)
  1. CELEBREX [Suspect]
     Active Substance: CELECOXIB
     Indication: OSTEOARTHRITIS
     Dosage: THERAPY DATES: SEPT. 20, 2014 (APPROX), 200MG, DAILY
     Dates: start: 20140920

REACTIONS (5)
  - Anaemia [None]
  - Lung infiltration [None]
  - Drug reaction with eosinophilia and systemic symptoms [None]
  - Acute kidney injury [None]
  - Hypoxia [None]

NARRATIVE: CASE EVENT DATE: 20141114
